FAERS Safety Report 20069116 (Version 1)
Quarter: 2021Q4

REPORT INFORMATION
  Report Type: Spontaneous
  Country: US (occurrence: US)
  Receive Date: 20211115
  Receipt Date: 20211115
  Transmission Date: 20220303
  Serious: No
  Sender: FDA-Public Use
  Company Number: US-ALNYLAM PHARMACEUTICALS, INC.-ALN-2021-002884

PATIENT

DRUGS (1)
  1. ONPATTRO [Suspect]
     Active Substance: PATISIRAN SODIUM
     Indication: Amyloidosis senile
     Dosage: UNK
     Route: 042
     Dates: start: 202110

REACTIONS (7)
  - Nausea [Recovered/Resolved]
  - Tremor [Unknown]
  - Headache [Recovered/Resolved]
  - Somnolence [Unknown]
  - Vomiting [Unknown]
  - Skin warm [Unknown]
  - Abdominal discomfort [Unknown]

NARRATIVE: CASE EVENT DATE: 20211001
